FAERS Safety Report 9552263 (Version 2)
Quarter: 2013Q4

REPORT INFORMATION
  Report Type: Other
  Country: FR (occurrence: FR)
  Receive Date: 20130925
  Receipt Date: 20131125
  Transmission Date: 20140711
  Serious: Yes (Hospitalization)
  Sender: FDA-Public Use
  Company Number: FR-MPIJNJ-2013JNJ000337

PATIENT
  Sex: 0

DRUGS (4)
  1. VELCADE [Suspect]
     Indication: PLASMA CELL MYELOMA
     Dosage: UNK
     Route: 058
     Dates: start: 20130620, end: 20130822
  2. ENDOXAN [Suspect]
     Indication: TRANSPLANT
     Dosage: 5340 MG, UNK
     Route: 042
     Dates: start: 20130823, end: 20130823
  3. THALIDOMIDE [Suspect]
     Indication: PLASMA CELL MYELOMA
     Dosage: 100 MG, UNK
     Route: 048
     Dates: start: 20130620, end: 20130822
  4. DEXAMETHASONE [Suspect]
     Indication: PLASMA CELL MYELOMA
     Dosage: 40 MG, UNK
     Route: 048
     Dates: start: 20130620, end: 20130822

REACTIONS (1)
  - Enterocolitis haemorrhagic [Recovered/Resolved]
